FAERS Safety Report 14618538 (Version 2)
Quarter: 2018Q2

REPORT INFORMATION
  Report Type: Report from Study
  Country: US (occurrence: US)
  Receive Date: 20180309
  Receipt Date: 20180417
  Transmission Date: 20180711
  Serious: Yes (Hospitalization, Disabling, Other)
  Sender: FDA-Public Use
  Company Number: US-ASPEN-GLO2018US001900

PATIENT

DRUGS (21)
  1. TIOGUANINE [Suspect]
     Active Substance: THIOGUANINE ANHYDROUS
     Dosage: 60 MG, UNK
     Route: 048
     Dates: start: 20171207, end: 20171220
  2. MERCAPTOPURINE. [Suspect]
     Active Substance: MERCAPTOPURINE
     Dosage: 100 MG
     Route: 065
     Dates: start: 20170619, end: 20170726
  3. METHOTREXATE. [Suspect]
     Active Substance: METHOTREXATE
     Indication: ACUTE LYMPHOCYTIC LEUKAEMIA
     Dosage: 15 MG, UNK
     Route: 037
     Dates: start: 20170510
  4. PEGASPARGASE [Suspect]
     Active Substance: PEGASPARGASE
     Dosage: 4475 IU/M2
     Route: 042
     Dates: start: 20170506
  5. INCB018424 [Suspect]
     Active Substance: RUXOLITINIB
     Dosage: 95 MG, BID
     Route: 048
     Dates: start: 20180111
  6. CYTARABINE. [Suspect]
     Active Substance: CYTARABINE
     Indication: ACUTE LYMPHOCYTIC LEUKAEMIA
     Dosage: 137.25 MG, UNK
     Route: 042
     Dates: start: 20170505, end: 20170726
  7. CYTARABINE. [Suspect]
     Active Substance: CYTARABINE
     Dosage: 114 MG
     Route: 042
     Dates: start: 20170619, end: 20171217
  8. VINCRISTINE [Suspect]
     Active Substance: VINCRISTINE
     Indication: ACUTE LYMPHOCYTIC LEUKAEMIA
     Dosage: 2 MG
     Route: 042
     Dates: start: 20170503
  9. VINCRISTINE [Suspect]
     Active Substance: VINCRISTINE
     Dosage: 2 MG
     Route: 042
     Dates: start: 20170603, end: 20171221
  10. VINCRISTINE [Suspect]
     Active Substance: VINCRISTINE
     Dosage: 2 MG
     Route: 042
     Dates: start: 20180112
  11. MERCAPTOPURINE. [Suspect]
     Active Substance: MERCAPTOPURINE
     Dosage: 125 MG
     Route: 048
     Dates: start: 20170829
  12. INCB018424 [Suspect]
     Active Substance: RUXOLITINIB
     Dosage: 95 MG, BID
     Route: 048
     Dates: start: 20170619, end: 20171220
  13. MERCAPTOPURINE. [Suspect]
     Active Substance: MERCAPTOPURINE
     Dosage: 100 MG
     Route: 048
     Dates: start: 20170829
  14. PEGASPARGASE [Suspect]
     Active Substance: PEGASPARGASE
     Dosage: 4475 IU/M2
     Route: 042
     Dates: start: 20180112
  15. PEGASPARGASE [Suspect]
     Active Substance: PEGASPARGASE
     Dosage: 4475 IU/M2
     Route: 042
     Dates: start: 20170506, end: 20171221
  16. INCB018424 [Suspect]
     Active Substance: RUXOLITINIB
     Indication: ACUTE LYMPHOCYTIC LEUKAEMIA
     Dosage: 90 MG, BID
     Route: 048
     Dates: start: 20170619, end: 20170726
  17. INCB018424 [Suspect]
     Active Substance: RUXOLITINIB
     Dosage: 90 MG, BID
     Route: 048
     Dates: start: 20170829
  18. TIOGUANINE [Suspect]
     Active Substance: THIOGUANINE ANHYDROUS
     Indication: ACUTE LYMPHOCYTIC LEUKAEMIA
     Dosage: 60 MG, UNK
     Route: 048
     Dates: start: 20171207, end: 20171220
  19. CYTARABINE. [Suspect]
     Active Substance: CYTARABINE
     Dosage: 137.25 MG
     Route: 042
     Dates: start: 20170829
  20. CYCLOPHOSPHAMIDE. [Suspect]
     Active Substance: CYCLOPHOSPHAMIDE
     Indication: ACUTE LYMPHOCYTIC LEUKAEMIA
     Dosage: 1790 MG, UNK
     Route: 042
     Dates: start: 20170719
  21. MERCAPTOPURINE. [Suspect]
     Active Substance: MERCAPTOPURINE
     Indication: ACUTE LYMPHOCYTIC LEUKAEMIA
     Dosage: 125 MG, UNK
     Route: 048
     Dates: start: 20170619, end: 20170726

REACTIONS (8)
  - Febrile neutropenia [Recovered/Resolved]
  - Encopresis [Recovered/Resolved]
  - Febrile neutropenia [Recovered/Resolved]
  - Cellulitis [Recovered/Resolved]
  - Perirectal abscess [Recovered/Resolved]
  - Bacterial infection [Recovered/Resolved]
  - Encopresis [Recovered/Resolved]
  - Sepsis [Recovered/Resolved]

NARRATIVE: CASE EVENT DATE: 20170724
